FAERS Safety Report 7280831-3 (Version None)
Quarter: 2011Q1

REPORT INFORMATION
  Report Type: 
  Country: None (occurrence: None)
  Receive Date: 20110208
  Receipt Date: 20110129
  Transmission Date: 20110831
  Serious: Yes (Other)
  Sender: FDA-Public Use
  Company Number: US-BAYER-2011-009445

PATIENT
  Age: 87 Year
  Sex: Male

DRUGS (1)
  1. CIPRO [Suspect]
     Indication: GRAFT INFECTION

REACTIONS (1)
  - POSTOPERATIVE ABSCESS [None]
